FAERS Safety Report 8322201-2 (Version None)
Quarter: 2012Q2

REPORT INFORMATION
  Report Type: 
  Country: None (occurrence: None)
  Receive Date: 20120426
  Receipt Date: 20120418
  Transmission Date: 20120825
  Serious: Yes (Other)
  Sender: FDA-Public Use
  Company Number: TPA2011A05697

PATIENT
  Age: 59 Year
  Sex: Male
  Weight: 93.8946 kg

DRUGS (6)
  1. CRESTOR [Concomitant]
  2. LOPERAMIDE [Concomitant]
  3. METFORM (METFORMIN HYDROCHLORIDE) [Concomitant]
  4. LIPITOR [Concomitant]
  5. ACTOS [Suspect]
     Dosage: 15 MG, 1 IN 1 D, PER ORAL
     Route: 048
  6. PREVACID [Concomitant]

REACTIONS (1)
  - VIITH NERVE PARALYSIS [None]
